FAERS Safety Report 5223525-8 (Version None)
Quarter: 2007Q1

REPORT INFORMATION
  Report Type: 
  Country: None (occurrence: None)
  Receive Date: 20070125
  Receipt Date: 20070110
  Transmission Date: 20070707
  Serious: Yes (Other)
  Sender: FDA-Public Use
  Company Number: 2007EN000003

PATIENT
  Age: 25 Year
  Sex: Female

DRUGS (1)
  1. ABELCET [Suspect]
     Dosage: 400 MG;
     Dates: start: 20070105

REACTIONS (4)
  - HEART RATE INCREASED [None]
  - PYREXIA [None]
  - RESPIRATORY DISTRESS [None]
  - TREMOR [None]
